FAERS Safety Report 5430563-9 (Version None)
Quarter: 2007Q3

REPORT INFORMATION
  Report Type: 
  Country: None (occurrence: None)
  Receive Date: 20070830
  Receipt Date: 20070820
  Transmission Date: 20080115
  Serious: Yes (Hospitalization)
  Sender: FDA-Public Use
  Company Number: FR-BAXTER-2007BH007182

PATIENT
  Age: 93 Year
  Sex: Female

DRUGS (7)
  1. SUPRANE [Suspect]
     Indication: SURGERY
     Route: 065
     Dates: start: 20070623, end: 20070623
  2. SUFENTA [Suspect]
     Indication: SURGERY
     Route: 065
     Dates: start: 20070623, end: 20070623
  3. DIPRIVAN [Suspect]
     Indication: SURGERY
     Route: 065
     Dates: start: 20070623, end: 20070623
  4. ATRACURIUM BESYLATE [Suspect]
     Indication: SURGERY
     Route: 065
     Dates: start: 20070623, end: 20070623
  5. KEFANDOL [Suspect]
     Indication: SURGERY
     Route: 065
     Dates: start: 20070623, end: 20070623
  6. ACUPAN [Suspect]
     Indication: SURGERY
     Route: 065
     Dates: start: 20070623, end: 20070623
  7. PERFALGAN [Suspect]
     Indication: SURGERY
     Route: 065
     Dates: start: 20070623, end: 20070623

REACTIONS (1)
  - CHOLESTASIS [None]
